FAERS Safety Report 11788955 (Version 1)
Quarter: 2015Q4

REPORT INFORMATION
  Report Type: Spontaneous
  Country: IT (occurrence: IT)
  Receive Date: 20151201
  Receipt Date: 20151201
  Transmission Date: 20160305
  Serious: Yes (Other)
  Sender: FDA-Public Use
  Company Number: IT-SUN PHARMACEUTICAL INDUSTRIES LTD-2015R1-106963

PATIENT
  Sex: Male
  Weight: 78 kg

DRUGS (1)
  1. ANASTROZOLE. [Suspect]
     Active Substance: ANASTROZOLE
     Indication: HORMONE THERAPY
     Dosage: 1 MG, DAILY
     Route: 065

REACTIONS (1)
  - Disease progression [Recovered/Resolved]

NARRATIVE: CASE EVENT DATE: 201106
